FAERS Safety Report 4915938-6 (Version None)
Quarter: 2006Q1

REPORT INFORMATION
  Report Type: 
  Country: None (occurrence: None)
  Receive Date: 20060214
  Receipt Date: 20060127
  Transmission Date: 20060701
  Serious: Yes (Hospitalization)
  Sender: FDA-Public Use
  Company Number: US200601004842

PATIENT
  Age: 37 Year
  Sex: Female

DRUGS (2)
  1. HUMULIN 70/30 [Suspect]
     Indication: GESTATIONAL DIABETES
     Dosage: SEE IMAGE
     Dates: start: 20051121
  2. HUMULIN 70/30 [Suspect]
     Indication: GESTATIONAL DIABETES
     Dosage: SEE IMAGE
     Dates: start: 20051121

REACTIONS (7)
  - ACCIDENTAL OVERDOSE [None]
  - BLOOD GLUCOSE DECREASED [None]
  - BLOOD GLUCOSE INCREASED [None]
  - DEVICE FAILURE [None]
  - DRUG EXPOSURE DURING PREGNANCY [None]
  - PHARMACEUTICAL PRODUCT COMPLAINT [None]
  - WRONG TECHNIQUE IN DRUG USAGE PROCESS [None]
